FAERS Safety Report 11346705 (Version 1)
Quarter: 2015Q3

REPORT INFORMATION
  Report Type: Spontaneous
  Country: US (occurrence: US)
  Receive Date: 20150803
  Receipt Date: 20150803
  Transmission Date: 20151125
  Serious: No
  Sender: FDA-Public Use
  Company Number: US-ELI_LILLY_AND_COMPANY-US201011005981

PATIENT
  Age: 44 Year
  Sex: Female

DRUGS (3)
  1. KLONOPIN [Concomitant]
     Active Substance: CLONAZEPAM
  2. MAXZIDE [Concomitant]
     Active Substance: HYDROCHLOROTHIAZIDE\TRIAMTERENE
  3. STRATTERA [Suspect]
     Active Substance: ATOMOXETINE HYDROCHLORIDE
     Dosage: 240 MG, DAILY (1/D)

REACTIONS (6)
  - Prescribed overdose [Unknown]
  - Dysarthria [Unknown]
  - Withdrawal syndrome [Unknown]
  - Anxiety [Unknown]
  - Tongue disorder [Unknown]
  - Hypoaesthesia [Unknown]
